FAERS Safety Report 4922277-6 (Version None)
Quarter: 2006Q1

REPORT INFORMATION
  Report Type: 
  Country: None (occurrence: None)
  Receive Date: 20060224
  Receipt Date: 20050816
  Transmission Date: 20060701
  Serious: Yes (Hospitalization)
  Sender: FDA-Public Use
  Company Number: US-MERCK-0508USA02901

PATIENT
  Age: 57 Year
  Sex: Female
  Weight: 105 kg

DRUGS (2)
  1. VIOXX [Suspect]
     Indication: ARTHRITIS
     Route: 048
     Dates: start: 20020620, end: 20020808
  2. VIOXX [Suspect]
     Route: 048
     Dates: start: 20020808, end: 20040930

REACTIONS (5)
  - ADVERSE EVENT [None]
  - CORONARY ARTERY STENOSIS [None]
  - EPICONDYLITIS [None]
  - HYPERLIPIDAEMIA [None]
  - MYOCARDIAL INFARCTION [None]
